FAERS Safety Report 6065362-0 (Version None)
Quarter: 2009Q1

REPORT INFORMATION
  Report Type: 
  Country: None (occurrence: None)
  Receive Date: 20090204
  Receipt Date: 20090120
  Transmission Date: 20090719
  Serious: Yes (Death)
  Sender: FDA-Public Use
  Company Number: US-GENENTECH-275581

PATIENT
  Sex: Female
  Weight: 86.17 kg

DRUGS (22)
  1. BEVACIZUMAB [Suspect]
     Indication: COLON CANCER METASTATIC
     Dosage: 5 MG/KG, UNK
     Route: 042
     Dates: start: 20080305, end: 20081231
  2. ENZASTAURIN [Suspect]
     Indication: COLON CANCER METASTATIC
     Dosage: 375 MG, TID
     Route: 048
     Dates: start: 20080305, end: 20080305
  3. ENZASTAURIN [Suspect]
     Dosage: 250 MG, BID
     Route: 048
     Dates: start: 20080306, end: 20090101
  4. LEUCOVORIN CALCIUM [Suspect]
     Indication: COLON CANCER METASTATIC
     Dosage: 400 MG/M2, UNK
     Route: 042
     Dates: start: 20080305, end: 20081231
  5. FLUOROURACIL [Suspect]
     Indication: COLON CANCER METASTATIC
     Dosage: 400 MG/M2, UNK
     Route: 040
     Dates: start: 20080305, end: 20081231
  6. FLUOROURACIL [Suspect]
     Dosage: 1800 MG/M2, UNK
     Route: 042
     Dates: start: 20080305, end: 20081231
  7. OXALIPLATIN [Concomitant]
     Indication: DRUG USE FOR UNKNOWN INDICATION
     Dosage: UNK
     Dates: start: 20081231, end: 20081231
  8. NYSTATIN [Concomitant]
     Indication: DRUG USE FOR UNKNOWN INDICATION
  9. LORAZEPAM [Concomitant]
     Indication: DRUG USE FOR UNKNOWN INDICATION
  10. PROCHLORPERAZINE [Concomitant]
     Indication: DRUG USE FOR UNKNOWN INDICATION
  11. ALOXI [Concomitant]
     Indication: DRUG USE FOR UNKNOWN INDICATION
  12. DEXAMETHASONE [Concomitant]
     Indication: DRUG USE FOR UNKNOWN INDICATION
  13. K-DUR [Concomitant]
     Indication: DRUG USE FOR UNKNOWN INDICATION
  14. DETROL [Concomitant]
     Indication: DRUG USE FOR UNKNOWN INDICATION
  15. COUMADIN [Concomitant]
     Indication: DRUG USE FOR UNKNOWN INDICATION
  16. ASCORBIC ACID [Concomitant]
     Indication: DRUG USE FOR UNKNOWN INDICATION
  17. MIRTAZAPINE [Concomitant]
     Indication: DRUG USE FOR UNKNOWN INDICATION
  18. GLYBURIDE [Concomitant]
     Indication: DRUG USE FOR UNKNOWN INDICATION
  19. IMODIUM [Concomitant]
     Indication: DRUG USE FOR UNKNOWN INDICATION
  20. FLUOXETINE HCL [Concomitant]
     Indication: DRUG USE FOR UNKNOWN INDICATION
  21. ONDANSETRON HYDROCHLORIDE [Concomitant]
     Indication: DRUG USE FOR UNKNOWN INDICATION
  22. DARBEPOETIN ALFA [Concomitant]
     Indication: DRUG USE FOR UNKNOWN INDICATION

REACTIONS (1)
  - ARRHYTHMIA [None]
